FAERS Safety Report 5730388-0 (Version None)
Quarter: 2008Q2

REPORT INFORMATION
  Report Type: 
  Country: None (occurrence: None)
  Receive Date: 20080505
  Receipt Date: 20080505
  Transmission Date: 20081010
  Serious: Yes (Hospitalization, Disabling)
  Sender: FDA-Public Use
  Company Number: None

PATIENT
  Age: 56 Year
  Sex: Male
  Weight: 116.1208 kg

DRUGS (1)
  1. CYMBALTA [Suspect]
     Indication: DEPRESSION
     Dosage: 50MG 1 DAY PO
     Route: 048
     Dates: start: 20080402, end: 20080502

REACTIONS (6)
  - BLOOD GLUCOSE INCREASED [None]
  - DYSPHONIA [None]
  - MUSCLE TWITCHING [None]
  - PARTIAL SEIZURES [None]
  - PHARYNGOLARYNGEAL PAIN [None]
  - SPEECH DISORDER [None]
